FAERS Safety Report 8859086 (Version 2)
Quarter: 2012Q4

REPORT INFORMATION
  Report Type: Spontaneous
  Country: GB (occurrence: None)
  Receive Date: 20121023
  Receipt Date: 20121107
  Transmission Date: 20130627
  Serious: Yes (Disabling)
  Sender: FDA-Public Use
  Company Number: AUR-APL-2012-04466

PATIENT
  Age: 63 Year
  Sex: Female
  Weight: 58 kg

DRUGS (2)
  1. CIPROFLOXACIN (CIPROFLOXACIN) [Suspect]
     Indication: CHEST INFECTION
     Dates: start: 20120820, end: 20120825
  2. CIPROFLOXACIN (CIPROFLOXACIN) [Suspect]
     Indication: CHEST INFECTION
     Route: 048

REACTIONS (1)
  - Tendon rupture [None]
